FAERS Safety Report 8079140-4 (Version None)
Quarter: 2012Q1

REPORT INFORMATION
  Report Type: 
  Country: None (occurrence: None)
  Receive Date: 20120128
  Receipt Date: 20110819
  Transmission Date: 20120608
  Serious: No
  Sender: FDA-Public Use
  Company Number: US-ABBOTT-11P-163-0847951-00

PATIENT
  Age: 34 Year
  Sex: Female

DRUGS (2)
  1. HUMIRA [Suspect]
     Indication: PSORIASIS
     Dates: start: 20101201
  2. BOTOX [Concomitant]
     Indication: DYSTONIA
     Dosage: TO NECK AND SHOULDER
     Route: 050

REACTIONS (3)
  - TREMOR [None]
  - DRUG DOSE OMISSION [None]
  - DRUG DISPENSING ERROR [None]
